FAERS Safety Report 13098088 (Version 1)
Quarter: 2017Q1

REPORT INFORMATION
  Report Type: Spontaneous
  Country: US (occurrence: US)
  Receive Date: 20170109
  Receipt Date: 20170109
  Transmission Date: 20170428
  Serious: Yes (Death)
  Sender: FDA-Public Use
  Company Number: US-MEDA-2017010008

PATIENT
  Age: 43 Year
  Sex: Female

DRUGS (6)
  1. ALPRAZOLAM. [Suspect]
     Active Substance: ALPRAZOLAM
  2. SERTRALINE [Suspect]
     Active Substance: SERTRALINE HYDROCHLORIDE
  3. CARISOPRODOL. [Suspect]
     Active Substance: CARISOPRODOL
  4. PREGABALIN. [Suspect]
     Active Substance: PREGABALIN
  5. TRAMADOL. [Suspect]
     Active Substance: TRAMADOL
  6. FLUVOXAMINE [Suspect]
     Active Substance: FLUVOXAMINE

REACTIONS (1)
  - Completed suicide [Fatal]

NARRATIVE: CASE EVENT DATE: 2015
